FAERS Safety Report 8485821-0 (Version None)
Quarter: 2012Q3

REPORT INFORMATION
  Report Type: 
  Country: None (occurrence: None)
  Receive Date: 20120703
  Receipt Date: 20120626
  Transmission Date: 20120928
  Serious: Yes (Hospitalization)
  Sender: FDA-Public Use
  Company Number: PHHO2012US009659

PATIENT
  Sex: Male
  Weight: 52.8 kg

DRUGS (33)
  1. ELIXIR PAREGORIQUE LIPHA [Concomitant]
  2. NEXIUM [Concomitant]
  3. ENALAPRIL MALEATE [Concomitant]
  4. LABETALOL HCL [Concomitant]
  5. FLUOROURACIL [Suspect]
     Dosage: 950 MG/D OVER 120 HOURS
     Dates: start: 20110807, end: 20110812
  6. CISPLATIN [Suspect]
     Indication: HEAD AND NECK CANCER
     Dosage: UNK
  7. COMPARATOR CETUXIMAB [Suspect]
     Dosage: 400 MG, QW
     Route: 042
     Dates: start: 20110713
  8. LEXAPRO [Concomitant]
  9. NEOSPORIN (NEOMYCIN SULFATE/POLYMYXIN B SULFATE) [Concomitant]
  10. DEXAMETHASONE SODIUM PHOSPHATE [Concomitant]
  11. CISPLATIN [Suspect]
     Dosage: 120 MG, Q21D
     Route: 042
     Dates: start: 20110524
  12. BLINDED NO TREATMENT RECEIVED [Suspect]
     Indication: SQUAMOUS CELL CARCINOMA
     Dosage: NO TREATMENT
  13. PLACEBO [Suspect]
     Indication: SQUAMOUS CELL CARCINOMA
     Dosage: NO TREATMENT
  14. MORPHINE [Concomitant]
  15. PACLITAXEL [Suspect]
     Indication: HEAD AND NECK CANCER
     Dosage: 299.3 MG, Q21 D
     Route: 042
     Dates: start: 20120524
  16. AFINITOR [Suspect]
     Indication: SQUAMOUS CELL CARCINOMA
     Dosage: NO TREATMENT
  17. COLACE [Concomitant]
  18. NYSTATIN [Concomitant]
  19. ONDANSETRON [Concomitant]
  20. ESOMEPRAZOLE [Concomitant]
  21. FLUOROURACIL [Suspect]
     Indication: HEAD AND NECK CANCER
     Dosage: 975 MG/D OVER 120 HOURS
     Dates: start: 20110704, end: 20110709
  22. COMPARATOR CETUXIMAB [Suspect]
     Dosage: 400 MG, QW
     Route: 042
     Dates: start: 20110808, end: 20110812
  23. HYDROXYUREA [Suspect]
     Indication: HEAD AND NECK CANCER
     Dosage: 500 MG, BID PER GT
     Route: 048
     Dates: start: 20110704, end: 20110709
  24. HYDROXYUREA [Suspect]
     Dosage: 500 MG, BID PER GT
     Dates: start: 20110807, end: 20110812
  25. LORAZEPAM [Concomitant]
  26. PROCHLORPERAZINE [Concomitant]
  27. CIPROFLOXACIN HCL [Concomitant]
  28. OXYCODONE HCL [Concomitant]
  29. OXYCONTIN [Concomitant]
  30. COMPARATOR CETUXIMAB [Suspect]
     Indication: HEAD AND NECK CANCER
     Dosage: 400 MG, QW
     Route: 042
     Dates: start: 20110607
  31. ORAMORPH SR [Concomitant]
  32. ENOXAPARIN [Concomitant]
  33. DOCUSATE [Concomitant]

REACTIONS (4)
  - CELLULITIS [None]
  - LARGE INTESTINE PERFORATION [None]
  - RADIATION SKIN INJURY [None]
  - RESPIRATORY FAILURE [None]
